FAERS Safety Report 16356913 (Version 1)
Quarter: 2019Q2

REPORT INFORMATION
  Report Type: Spontaneous
  Country: FR (occurrence: FR)
  Receive Date: 20190527
  Receipt Date: 20190527
  Transmission Date: 20190711
  Serious: Yes (Death)
  Sender: FDA-Public Use
  Company Number: FR-VELOXIS PHARMACEUTICALS, INC.-2019VELFR1531

PATIENT
  Age: 48 Year
  Sex: Male

DRUGS (10)
  1. ENVARSUS XR [Suspect]
     Active Substance: TACROLIMUS
     Indication: LIVER TRANSPLANT
     Dosage: 1 DF, QD
     Route: 048
     Dates: end: 201905
  2. QUESTRAN [Suspect]
     Active Substance: CHOLESTYRAMINE
     Indication: PRODUCT USED FOR UNKNOWN INDICATION
     Dosage: 3 DF, QD
     Route: 048
  3. ALPRAZOLAM. [Concomitant]
     Active Substance: ALPRAZOLAM
     Indication: PRODUCT USED FOR UNKNOWN INDICATION
     Route: 048
  4. LASILIX SPECIAL                    /00032601/ [Suspect]
     Active Substance: FUROSEMIDE
     Indication: HYPERTENSION
     Dosage: 125 MG, QD, 1/4 CAP OF 500 MG /DAY
     Route: 048
  5. NEBIVOLOL. [Suspect]
     Active Substance: NEBIVOLOL
     Indication: HYPERTENSION
     Dosage: 5 MG, QD
     Route: 048
     Dates: start: 201905
  6. NOXAFIL [Suspect]
     Active Substance: POSACONAZOLE
     Indication: INFECTION
     Dosage: 3 DF, QD
     Route: 048
     Dates: start: 201904, end: 201905
  7. MEDROL [Suspect]
     Active Substance: METHYLPREDNISOLONE
     Indication: LIVER TRANSPLANT
     Dosage: 1 DF, QD
     Route: 048
  8. VIMPAT [Suspect]
     Active Substance: LACOSAMIDE
     Indication: SEIZURE
     Dosage: 2 DF, QD
     Route: 048
     Dates: end: 201905
  9. CACIT VITAMINE D3 [Suspect]
     Active Substance: CALCIUM CARBONATE\CHOLECALCIFEROL
     Indication: MULTI-VITAMIN DEFICIENCY
     Dosage: 1 DF, QD (2 SACHETS AT LUNCH TIME)
     Route: 048
     Dates: end: 201905
  10. LERCAN [Concomitant]
     Active Substance: LERCANIDIPINE
     Indication: PRODUCT USED FOR UNKNOWN INDICATION
     Dosage: UNK
     Route: 065

REACTIONS (1)
  - Pancreatitis acute [Fatal]

NARRATIVE: CASE EVENT DATE: 20190504
